FAERS Safety Report 4907487-6 (Version None)
Quarter: 2006Q1

REPORT INFORMATION
  Report Type: 
  Country: None (occurrence: None)
  Receive Date: 20060207
  Receipt Date: 20060125
  Transmission Date: 20060701
  Serious: Yes (Hospitalization, Other)
  Sender: FDA-Public Use
  Company Number: 2006015165

PATIENT
  Age: 63 Year
  Sex: Female
  Weight: 81.6475 kg

DRUGS (2)
  1. DETROL [Suspect]
     Indication: ILL-DEFINED DISORDER
     Dosage: 2 IN 1 D
  2. SYNTHROID [Concomitant]

REACTIONS (3)
  - COLECTOMY [None]
  - KNEE ARTHROPLASTY [None]
  - OVERWEIGHT [None]
